FAERS Safety Report 4907435-9 (Version None)
Quarter: 2006Q1

REPORT INFORMATION
  Report Type: 
  Country: None (occurrence: None)
  Receive Date: 20060210
  Receipt Date: 20051010
  Transmission Date: 20060701
  Serious: Yes (Hospitalization)
  Sender: FDA-Public Use
  Company Number: DE-MERCK-0510DEU00034

PATIENT
  Age: 61 Year
  Sex: Female
  Weight: 67 kg

DRUGS (11)
  1. VIOXX [Suspect]
     Indication: MUSCULOSKELETAL PAIN
     Route: 048
     Dates: start: 20000101
  2. VIOXX [Suspect]
     Route: 048
     Dates: start: 20000913, end: 20001001
  3. VIOXX [Suspect]
     Route: 048
     Dates: start: 20000901, end: 20000901
  4. VIOXX [Suspect]
     Route: 048
     Dates: start: 20020901, end: 20040901
  5. VIOXX [Suspect]
     Indication: TENSION
     Route: 048
     Dates: start: 20000101
  6. VIOXX [Suspect]
     Route: 048
     Dates: start: 20000913, end: 20001001
  7. VIOXX [Suspect]
     Route: 048
     Dates: start: 20000901, end: 20000901
  8. VIOXX [Suspect]
     Route: 048
     Dates: start: 20020901, end: 20040901
  9. IBUPROFEN [Concomitant]
     Indication: CAUDA EQUINA SYNDROME
     Route: 065
     Dates: start: 20000101, end: 20040101
  10. DICLOFENAC [Concomitant]
     Route: 048
  11. DICLOFENAC [Concomitant]
     Route: 048

REACTIONS (5)
  - ARRHYTHMIA [None]
  - CARDIAC DISORDER [None]
  - COUGH [None]
  - GOITRE [None]
  - PAIN [None]
